FAERS Safety Report 14204090 (Version 2)
Quarter: 2018Q1

REPORT INFORMATION
  Report Type: Report from Study
  Country: BR (occurrence: BR)
  Receive Date: 20171120
  Receipt Date: 20180122
  Transmission Date: 20180508
  Serious: Yes (Other)
  Sender: FDA-Public Use
  Company Number: PHHY2017BR155396

PATIENT
  Age: 81 Year
  Sex: Female
  Weight: 65 kg

DRUGS (11)
  1. LUFTAL [Concomitant]
     Active Substance: DIMETHICONE
     Indication: ABDOMINAL DISCOMFORT
     Route: 065
  2. DONEPEZIL. [Concomitant]
     Active Substance: DONEPEZIL
     Indication: DEMENTIA ALZHEIMER^S TYPE
     Dosage: 1 DF, QD (FOR 5 YEARS)
     Route: 048
  3. BUSCOPAN [Concomitant]
     Active Substance: BUTYLSCOPOLAMINE BROMIDE
     Indication: ABDOMINAL DISCOMFORT
     Route: 065
  4. PARACETAMOL [Concomitant]
     Active Substance: ACETAMINOPHEN
     Indication: PAIN
     Dosage: UNK UNK, PRN (SHE USES IT WHEN SHE HAS ACHES)
     Route: 065
  5. PROLIA [Concomitant]
     Active Substance: DENOSUMAB
     Indication: PAIN
     Dosage: UNK UNK, PRN (SHE USES IT WHEN SHE HAS ACHES)
     Route: 065
  6. RIVOTRIL [Concomitant]
     Active Substance: CLONAZEPAM
     Indication: SLEEP DISORDER
     Route: 065
  7. ACLASTA [Suspect]
     Active Substance: ZOLEDRONIC ACID
     Indication: PRODUCT USED FOR UNKNOWN INDICATION
     Dosage: 1 DF, Q12MO
     Route: 042
  8. QUETIAPINE. [Concomitant]
     Active Substance: QUETIAPINE
     Indication: DEMENTIA ALZHEIMER^S TYPE
     Dosage: 1 DF, QD (FOR 3 YEARS)
     Route: 048
  9. TRAMADOL. [Concomitant]
     Active Substance: TRAMADOL
     Indication: PAIN
     Dosage: 3 DF, QD
     Route: 065
  10. TRAMADOL. [Concomitant]
     Active Substance: TRAMADOL
     Dosage: UNK, PRN (SHE USES IT WHEN SHE HAS ACHES)
     Route: 065
  11. FAMOTIDINA [Concomitant]
     Indication: PROPHYLAXIS
     Dosage: 3 DF, QD
     Route: 065

REACTIONS (12)
  - Lung disorder [Unknown]
  - Pain in extremity [Not Recovered/Not Resolved]
  - Atrophy [Unknown]
  - Back pain [Unknown]
  - Weight fluctuation [Unknown]
  - Headache [Unknown]
  - Malaise [Unknown]
  - Varicose vein [Unknown]
  - Deafness [Unknown]
  - Head discomfort [Unknown]
  - Blood calcium abnormal [Unknown]
  - Phlebitis [Unknown]

NARRATIVE: CASE EVENT DATE: 201712
